FAERS Safety Report 17878977 (Version 1)
Quarter: 2020Q2

REPORT INFORMATION
  Report Type: Spontaneous
  Country: US (occurrence: US)
  Receive Date: 20200609
  Receipt Date: 20200609
  Transmission Date: 20200714
  Serious: No
  Sender: FDA-Public Use
  Company Number: None

PATIENT
  Age: 76 Year
  Sex: Female

DRUGS (1)
  1. ALYQ [Suspect]
     Active Substance: TADALAFIL
     Indication: PULMONARY ARTERIAL HYPERTENSION
     Route: 048
     Dates: start: 20200330

REACTIONS (5)
  - Gait disturbance [None]
  - Insomnia [None]
  - Dysstasia [None]
  - Pain in extremity [None]
  - Eating disorder [None]

NARRATIVE: CASE EVENT DATE: 202005
